FAERS Safety Report 7081097-X (Version None)
Quarter: 2010Q4

REPORT INFORMATION
  Report Type: 
  Country: None (occurrence: None)
  Receive Date: 20101103
  Receipt Date: 20101028
  Transmission Date: 20110411
  Serious: Yes (Hospitalization)
  Sender: FDA-Public Use
  Company Number: A0863840A

PATIENT
  Age: 58 Year
  Sex: Female

DRUGS (1)
  1. AVANDIA [Suspect]
     Dosage: 4MG PER DAY
     Route: 048
     Dates: start: 20060509, end: 20090408

REACTIONS (3)
  - CARDIAC ASSISTANCE DEVICE USER [None]
  - CARDIAC FAILURE CONGESTIVE [None]
  - HEART RATE DECREASED [None]
